FAERS Safety Report 5460072-2 (Version None)
Quarter: 2007Q3

REPORT INFORMATION
  Report Type: 
  Country: None (occurrence: None)
  Receive Date: 20070919
  Receipt Date: 20070814
  Transmission Date: 20080115
  Serious: No
  Sender: FDA-Public Use
  Company Number: US-ASTRAZENECA-2007UW10903

PATIENT
  Sex: Female

DRUGS (3)
  1. SEROQUEL [Suspect]
     Indication: BIPOLAR I DISORDER
     Route: 048
     Dates: end: 20060301
  2. SEROQUEL [Suspect]
     Route: 048
     Dates: start: 20061001
  3. LAMICTAL [Concomitant]

REACTIONS (3)
  - ABNORMAL DREAMS [None]
  - WEIGHT INCREASED [None]
  - WEIGHT LOSS POOR [None]
